FAERS Safety Report 18368333 (Version 2)
Quarter: 2020Q4

REPORT INFORMATION
  Report Type: Spontaneous
  Country: US (occurrence: US)
  Receive Date: 20201009
  Receipt Date: 20201118
  Transmission Date: 20210114
  Serious: No
  Sender: FDA-Public Use
  Company Number: NVSC2020US269061

PATIENT

DRUGS (1)
  1. XIIDRA [Suspect]
     Active Substance: LIFITEGRAST
     Indication: PRODUCT USED FOR UNKNOWN INDICATION
     Dosage: UNK
     Route: 065

REACTIONS (6)
  - Palpitations [Unknown]
  - Lacrimation increased [Unknown]
  - Visual impairment [Unknown]
  - Sinusitis [Unknown]
  - Headache [Unknown]
  - Dysgeusia [Unknown]
